FAERS Safety Report 8307305-2 (Version None)
Quarter: 2012Q2

REPORT INFORMATION
  Report Type: 
  Country: None (occurrence: None)
  Receive Date: 20120420
  Receipt Date: 20120411
  Transmission Date: 20120825
  Serious: Yes (Hospitalization)
  Sender: FDA-Public Use
  Company Number: 1257090

PATIENT
  Sex: Male

DRUGS (1)
  1. HEPARIN SODIUM [Suspect]
     Indication: ANTICOAGULANT THERAPY

REACTIONS (7)
  - COLONIC HAEMATOMA [None]
  - RECTAL HAEMORRHAGE [None]
  - DIARRHOEA HAEMORRHAGIC [None]
  - LARGE INTESTINAL ULCER [None]
  - VOMITING [None]
  - ANAEMIA [None]
  - HYPOALBUMINAEMIA [None]
